FAERS Safety Report 13155433 (Version 1)
Quarter: 2017Q1

REPORT INFORMATION
  Report Type: Spontaneous
  Country: GB (occurrence: GB)
  Receive Date: 20170126
  Receipt Date: 20170126
  Transmission Date: 20170428
  Serious: Yes (Hospitalization)
  Sender: FDA-Public Use
  Company Number: GB-TAKEDA-2017TUS001599

PATIENT
  Sex: Female

DRUGS (2)
  1. ENTYVIO [Suspect]
     Active Substance: VEDOLIZUMAB
     Indication: COLITIS ULCERATIVE
     Route: 065
  2. AZATHIOPRINE. [Concomitant]
     Active Substance: AZATHIOPRINE
     Dosage: UNK

REACTIONS (5)
  - Platelet count decreased [Recovering/Resolving]
  - Cytomegalovirus infection [Recovering/Resolving]
  - Viral infection [Recovering/Resolving]
  - Liver function test abnormal [Recovering/Resolving]
  - Therapeutic response decreased [Unknown]
